FAERS Safety Report 17712271 (Version 1)
Quarter: 2020Q2

REPORT INFORMATION
  Report Type: Spontaneous
  Country: US (occurrence: US)
  Receive Date: 20200425
  Receipt Date: 20200425
  Transmission Date: 20200714
  Serious: No
  Sender: FDA-Public Use
  Company Number: None

PATIENT
  Age: 69 Year
  Sex: Female

DRUGS (2)
  1. CAPECITABINE TAB 500MG [Suspect]
     Active Substance: CAPECITABINE
     Route: 048
     Dates: start: 201909
  2. CAPECITABINE 150MG [Concomitant]
     Active Substance: CAPECITABINE

REACTIONS (1)
  - Foot fracture [None]

NARRATIVE: CASE EVENT DATE: 20200425
